FAERS Safety Report 25019161 (Version 1)
Quarter: 2025Q1

REPORT INFORMATION
  Report Type: Spontaneous
  Country: US (occurrence: US)
  Receive Date: 20250227
  Receipt Date: 20250227
  Transmission Date: 20250409
  Serious: No
  Sender: VERTEX
  Company Number: US-VERTEX PHARMACEUTICALS-2025-002990

PATIENT
  Sex: Female

DRUGS (1)
  1. TRIKAFTA [Suspect]
     Active Substance: ELEXACAFTOR\IVACAFTOR\TEZACAFTOR
     Indication: Cystic fibrosis
     Route: 048
     Dates: start: 202501, end: 2025

REACTIONS (5)
  - Frustration tolerance decreased [Recovered/Resolved]
  - Anger [Recovered/Resolved]
  - Middle insomnia [Recovered/Resolved]
  - Fear [Recovered/Resolved]
  - Sleep terror [Recovered/Resolved]

NARRATIVE: CASE EVENT DATE: 20250101
